FAERS Safety Report 9692251 (Version 4)
Quarter: 2013Q4

REPORT INFORMATION
  Report Type: Spontaneous
  Country: DE (occurrence: DE)
  Receive Date: 20131118
  Receipt Date: 20131226
  Transmission Date: 20140711
  Serious: Yes (Life-Threatening, Hospitalization)
  Sender: FDA-Public Use
  Company Number: DE-BRISTOL-MYERS SQUIBB COMPANY-19811231

PATIENT
  Age: 81 Year
  Sex: Female
  Weight: 59 kg

DRUGS (4)
  1. ELIQUIS [Suspect]
     Indication: THROMBOSIS
     Dosage: REDUCED TO 2.5 MG TWICE DAILY,2 X 2.5 MG
     Route: 048
     Dates: start: 20131014
  2. ELIQUIS [Suspect]
     Indication: CEREBROVASCULAR ACCIDENT PROPHYLAXIS
     Dosage: REDUCED TO 2.5 MG TWICE DAILY,2 X 2.5 MG
     Route: 048
     Dates: start: 20131014
  3. SIMVASTATIN [Suspect]
  4. BISOPROLOL [Suspect]

REACTIONS (4)
  - Colitis erosive [Recovered/Resolved]
  - Melaena [Recovered/Resolved]
  - Reflux gastritis [Unknown]
  - Atrial fibrillation [Unknown]
